FAERS Safety Report 25661548 (Version 1)
Quarter: 2025Q3

REPORT INFORMATION
  Report Type: Spontaneous
  Country: US (occurrence: US)
  Receive Date: 20250808
  Receipt Date: 20250808
  Transmission Date: 20251020
  Serious: No
  Sender: PFIZER
  Company Number: US-PFIZER INC-PV202500095092

PATIENT
  Age: 5 Year
  Sex: Female

DRUGS (1)
  1. CRIZOTINIB [Suspect]
     Active Substance: CRIZOTINIB
     Indication: Anaplastic large cell lymphoma T- and null-cell types

REACTIONS (2)
  - Headache [Unknown]
  - Vomiting [Not Recovered/Not Resolved]
